FAERS Safety Report 25972469 (Version 1)
Quarter: 2025Q4

REPORT INFORMATION
  Report Type: Spontaneous
  Country: US (occurrence: US)
  Receive Date: 20251029
  Receipt Date: 20251029
  Transmission Date: 20260118
  Serious: No
  Sender: LUPIN
  Company Number: US-LUPIN PHARMACEUTICALS INC.-2025-09698

PATIENT
  Age: 12 Year
  Weight: 59 kg

DRUGS (1)
  1. JENCYCLA [Suspect]
     Active Substance: NORETHINDRONE
     Indication: Menstruation irregular
     Dosage: UNK UNK, QD
     Route: 065

REACTIONS (2)
  - Nausea [Recovered/Resolved]
  - Off label use [Unknown]
